FAERS Safety Report 7565685-X (Version None)
Quarter: 2011Q2

REPORT INFORMATION
  Report Type: 
  Country: None (occurrence: None)
  Receive Date: 20110623
  Receipt Date: 20100617
  Transmission Date: 20111010
  Serious: No
  Sender: FDA-Public Use
  Company Number: US-MUTUAL PHARMACEUTICAL COMPANY, INC.-1-23089086

PATIENT
  Sex: Female
  Weight: 46.308 kg

DRUGS (8)
  1. VENLAFAXINE, CAFFEINE-CONTAINING STIMULANTS [Concomitant]
  2. SLEEP MEDICATIONS, STEROIDS [Concomitant]
  3. REGLAN [Suspect]
     Route: 065
     Dates: start: 20080118, end: 20090218
  4. METOCLOPRAMIDE [Suspect]
     Route: 065
     Dates: start: 20080118, end: 20090218
  5. METOCLOPRAMIDE [Suspect]
     Route: 065
     Dates: start: 20080118, end: 20090218
  6. ABILIFY, DIPHENHYDRAMINE, LORAZEPAM, PAROXETINE, [Concomitant]
  7. PERPHENAZINE, QUETIAPINE, SERTRALINE [Concomitant]
  8. GLUCOPHAGE, XANAX, NEXIUM, TOPAMAX, AMITRIPTYLINE [Concomitant]

REACTIONS (4)
  - DYSKINESIA [None]
  - INCORRECT DRUG ADMINISTRATION DURATION [None]
  - EMOTIONAL DISORDER [None]
  - EXTRAPYRAMIDAL DISORDER [None]
